FAERS Safety Report 9372352 (Version 6)
Quarter: 2013Q4

REPORT INFORMATION
  Report Type: Spontaneous
  Country: US (occurrence: US)
  Receive Date: 20130627
  Receipt Date: 20131122
  Transmission Date: 20140711
  Serious: Yes (Other)
  Sender: FDA-Public Use
  Company Number: US-AMGEN-USASP2013044114

PATIENT
  Sex: Female

DRUGS (1)
  1. PROLIA [Suspect]
     Indication: OSTEOPOROSIS POSTMENOPAUSAL
     Dosage: UNK
     Route: 065
     Dates: start: 201302

REACTIONS (9)
  - Dental necrosis [Unknown]
  - Palpitations [Not Recovered/Not Resolved]
  - Neck pain [Recovering/Resolving]
  - Tooth fracture [Unknown]
  - Tooth disorder [Unknown]
  - Toothache [Unknown]
  - Cataract [Not Recovered/Not Resolved]
  - Dry eye [Not Recovered/Not Resolved]
  - Musculoskeletal pain [Recovering/Resolving]
